FAERS Safety Report 12889277 (Version 1)
Quarter: 2016Q4

REPORT INFORMATION
  Report Type: Spontaneous
  Country: US (occurrence: US)
  Receive Date: 20161027
  Receipt Date: 20161027
  Transmission Date: 20170207
  Serious: No
  Sender: FDA-Public Use
  Company Number: US-BAYER-2016-206300

PATIENT
  Age: 55 Year
  Sex: Male
  Weight: 108.84 kg

DRUGS (6)
  1. CLARITIN REDITABS [Suspect]
     Active Substance: LORATADINE
     Indication: RHINORRHOEA
  2. CLARITIN REDITABS [Suspect]
     Active Substance: LORATADINE
     Indication: NASAL DISCOMFORT
  3. CLARITIN REDITABS [Suspect]
     Active Substance: LORATADINE
     Indication: NASOPHARYNGITIS
  4. CLARITIN REDITABS [Suspect]
     Active Substance: LORATADINE
     Indication: HYPERSENSITIVITY
     Dosage: 1 DF, PRN
     Route: 048
     Dates: end: 20161025
  5. CLARITIN REDITABS [Suspect]
     Active Substance: LORATADINE
     Indication: LACRIMATION INCREASED
  6. CLARITIN REDITABS [Suspect]
     Active Substance: LORATADINE
     Indication: SNEEZING

REACTIONS (1)
  - Drug ineffective [Unknown]
